FAERS Safety Report 25729621 (Version 1)
Quarter: 2025Q3

REPORT INFORMATION
  Report Type: Other
  Country: EU (occurrence: EU)
  Receive Date: 20250827
  Receipt Date: 20250827
  Transmission Date: 20251020
  Serious: Yes (Hospitalization)
  Sender: BIOCON
  Company Number: None

PATIENT

DRUGS (1)
  1. ADALIMUMAB [Suspect]
     Active Substance: ADALIMUMAB
     Indication: Ankylosing spondylitis
     Dosage: 40 MILLIGRAM, Q2W
     Route: 058
     Dates: start: 20220523, end: 202410

REACTIONS (2)
  - Aortitis [Not Recovered/Not Resolved]
  - Renal vasculitis [Not Recovered/Not Resolved]

NARRATIVE: CASE EVENT DATE: 20241001
